FAERS Safety Report 21360417 (Version 5)
Quarter: 2023Q2

REPORT INFORMATION
  Report Type: Report from Study
  Country: IT (occurrence: IT)
  Receive Date: 20220921
  Receipt Date: 20230503
  Transmission Date: 20230722
  Serious: Yes (Disabling)
  Sender: FDA-Public Use
  Company Number: IT-ZOGENIX INTERNATIONAL LIMITED-ZX008-2022-00012

PATIENT
  Age: 21 Year
  Sex: Female
  Weight: 45.5 kg

DRUGS (13)
  1. FENFLURAMINE HYDROCHLORIDE [Suspect]
     Active Substance: FENFLURAMINE HYDROCHLORIDE
     Indication: Lennox-Gastaut syndrome
     Dosage: 6 MILLILITRE, BID (0.65 MG/KG/DAY)
     Route: 048
     Dates: start: 20200730, end: 20220112
  2. FENFLURAMINE HYDROCHLORIDE [Suspect]
     Active Substance: FENFLURAMINE HYDROCHLORIDE
     Dosage: 5 MILLILITRE, BID (0.5 MG/KG/DAY)
     Route: 048
     Dates: start: 20220113, end: 20220217
  3. FENFLURAMINE HYDROCHLORIDE [Suspect]
     Active Substance: FENFLURAMINE HYDROCHLORIDE
     Dosage: 2 MILLILITRE, BID
     Route: 048
     Dates: start: 20220217, end: 20220224
  4. FENFLURAMINE HYDROCHLORIDE [Suspect]
     Active Substance: FENFLURAMINE HYDROCHLORIDE
     Dosage: 0.2 MILLIGRAM PER KILOGRAM, QD
     Route: 048
     Dates: start: 20220225
  5. FENFLURAMINE HYDROCHLORIDE [Suspect]
     Active Substance: FENFLURAMINE HYDROCHLORIDE
     Dosage: 0.8 MILLIGRAM PER KILOGRAM, QD
     Route: 048
     Dates: end: 20220411
  6. FENFLURAMINE HYDROCHLORIDE [Suspect]
     Active Substance: FENFLURAMINE HYDROCHLORIDE
     Dosage: TAPERED DOSE
     Route: 048
     Dates: end: 20220422
  7. FENFLURAMINE HYDROCHLORIDE [Suspect]
     Active Substance: FENFLURAMINE HYDROCHLORIDE
     Dosage: UNK
     Dates: end: 202206
  8. DIAMOX SEQUELS [Concomitant]
     Active Substance: ACETAZOLAMIDE
     Indication: Severe myoclonic epilepsy of infancy
     Dosage: 250 MILLIGRAM, QPM
     Route: 048
     Dates: start: 2019
  9. DIAMOX SEQUELS [Concomitant]
     Active Substance: ACETAZOLAMIDE
     Indication: Lennox-Gastaut syndrome
  10. CLOBAZAM [Concomitant]
     Active Substance: CLOBAZAM
     Indication: Severe myoclonic epilepsy of infancy
     Dosage: 10 MILLIGRAM, BID
     Route: 048
     Dates: start: 20210723
  11. CLOBAZAM [Concomitant]
     Active Substance: CLOBAZAM
     Indication: Lennox-Gastaut syndrome
  12. VALPROATE SODIUM [Concomitant]
     Active Substance: VALPROATE SODIUM
     Indication: Severe myoclonic epilepsy of infancy
     Dosage: 500 MILLIGRAM, BID
     Route: 048
     Dates: start: 20210225
  13. VALPROATE SODIUM [Concomitant]
     Active Substance: VALPROATE SODIUM
     Indication: Lennox-Gastaut syndrome

REACTIONS (1)
  - Parkinsonism [Not Recovered/Not Resolved]

NARRATIVE: CASE EVENT DATE: 20220113
